FAERS Safety Report 21610785 (Version 2)
Quarter: 2022Q4

REPORT INFORMATION
  Report Type: Spontaneous
  Country: US (occurrence: None)
  Receive Date: 20221117
  Receipt Date: 20221227
  Transmission Date: 20230113
  Serious: Yes (Other)
  Sender: FDA-Public Use
  Company Number: US-ROCHE-3216578

PATIENT

DRUGS (4)
  1. ACTIVASE [Suspect]
     Active Substance: ALTEPLASE
     Indication: Ischaemic stroke
     Dosage: BOLUS DOSE
     Route: 042
     Dates: start: 20221009, end: 20221009
  2. ACTIVASE [Suspect]
     Active Substance: ALTEPLASE
  3. ACTIVASE [Suspect]
     Active Substance: ALTEPLASE
     Dosage: ONE TIME DOSE
     Route: 042
     Dates: start: 20221009, end: 20221009
  4. ACTIVASE [Suspect]
     Active Substance: ALTEPLASE

REACTIONS (3)
  - Inappropriate schedule of product administration [Unknown]
  - Device leakage [Unknown]
  - No adverse event [Unknown]

NARRATIVE: CASE EVENT DATE: 20221009
